FAERS Safety Report 8163673-6 (Version None)
Quarter: 2012Q1

REPORT INFORMATION
  Report Type: 
  Country: None (occurrence: None)
  Receive Date: 20120224
  Receipt Date: 20120213
  Transmission Date: 20120608
  Serious: Yes (Hospitalization)
  Sender: FDA-Public Use
  Company Number: PHHY2012JP010545

PATIENT
  Age: 38 Year
  Sex: Male

DRUGS (2)
  1. CLOZARIL [Suspect]
     Indication: SCHIZOPHRENIA
     Dosage: 12.5 MG, DAILY
     Route: 048
     Dates: start: 20120118, end: 20120131
  2. CLOZARIL [Suspect]
     Dosage: 150 MG, UNK
     Route: 048
     Dates: start: 20120201, end: 20120203

REACTIONS (2)
  - GENERAL PHYSICAL HEALTH DETERIORATION [None]
  - PANCREATITIS ACUTE [None]
